FAERS Safety Report 13866438 (Version 2)
Quarter: 2018Q2

REPORT INFORMATION
  Report Type: Spontaneous
  Country: US (occurrence: US)
  Receive Date: 20170814
  Receipt Date: 20180608
  Transmission Date: 20180711
  Serious: No
  Sender: FDA-Public Use
  Company Number: US-ROCHE-1917330

PATIENT
  Sex: Female
  Weight: 59.93 kg

DRUGS (8)
  1. ACTEMRA [Suspect]
     Active Substance: TOCILIZUMAB
     Indication: RHEUMATOID ARTHRITIS
     Dosage: 162 MG/0.9ML
     Route: 058
     Dates: start: 20160725
  2. SULFASALAZINE. [Concomitant]
     Active Substance: SULFASALAZINE
  3. TYLENOL [Concomitant]
     Active Substance: ACETAMINOPHEN
  4. HYDROXYCHLOROQUINE [Concomitant]
     Active Substance: HYDROXYCHLOROQUINE
     Route: 048
     Dates: start: 20150320, end: 20170301
  5. METHOTREXATE SODIUM. [Concomitant]
     Active Substance: METHOTREXATE SODIUM
     Route: 065
     Dates: start: 20140319
  6. FOLIC ACID. [Concomitant]
     Active Substance: FOLIC ACID
     Route: 048
     Dates: start: 20140319
  7. PLAQUENIL [Concomitant]
     Active Substance: HYDROXYCHLOROQUINE SULFATE
     Route: 048
     Dates: start: 20140319
  8. ORENCIA [Concomitant]
     Active Substance: ABATACEPT
     Route: 058
     Dates: start: 20130719, end: 20170301

REACTIONS (3)
  - Dizziness [Recovered/Resolved]
  - Headache [Recovered/Resolved]
  - Headache [Unknown]
